FAERS Safety Report 7781106-6 (Version None)
Quarter: 2011Q3

REPORT INFORMATION
  Report Type: 
  Country: None (occurrence: None)
  Receive Date: 20110927
  Receipt Date: 20110923
  Transmission Date: 20111222
  Serious: Yes (Death, Hospitalization)
  Sender: FDA-Public Use
  Company Number: PHHY2011GB78932

PATIENT
  Age: 18 Year
  Sex: Female

DRUGS (5)
  1. DIAZEPAM [Suspect]
     Dosage: 60 MG, UNK
  2. DICLOFENAC [Suspect]
     Dosage: 600 MG, UNK
  3. FERROUS SULFATE TAB [Suspect]
     Dosage: UNK UKN, UNK
  4. ASCORBIC ACID [Suspect]
     Dosage: UNK UKN, UNK
  5. FOLIC ACID [Suspect]
     Dosage: UNK UKN, UNK

REACTIONS (35)
  - CEREBRAL HAEMORRHAGE [None]
  - PERFORATION BILE DUCT [None]
  - ACUTE HEPATIC FAILURE [None]
  - BLOOD IRON INCREASED [None]
  - CONDITION AGGRAVATED [None]
  - SEPTIC SHOCK [None]
  - ASPARTATE AMINOTRANSFERASE INCREASED [None]
  - INTRACRANIAL PRESSURE INCREASED [None]
  - CHOLESTASIS [None]
  - BLOOD LACTIC ACID INCREASED [None]
  - BLOOD BILIRUBIN INCREASED [None]
  - ACUTE RESPIRATORY DISTRESS SYNDROME [None]
  - PULMONARY TOXICITY [None]
  - ENCEPHALOPATHY [None]
  - SEPSIS [None]
  - GRAFT ISCHAEMIA [None]
  - LIVER INJURY [None]
  - JAUNDICE [None]
  - LUNG DISORDER [None]
  - RENAL FAILURE [None]
  - HEPATIC ARTERY OCCLUSION [None]
  - RIGHT VENTRICULAR DYSFUNCTION [None]
  - BRAIN STEM SYNDROME [None]
  - PULMONARY HYPERTENSION [None]
  - SHOCK [None]
  - MULTI-ORGAN FAILURE [None]
  - NEUROGENIC SHOCK [None]
  - HEPATIC NECROSIS [None]
  - LUNG ABSCESS [None]
  - PULMONARY HAEMORRHAGE [None]
  - CARDIAC DISORDER [None]
  - ASPERGILLOSIS [None]
  - COMPLICATIONS OF TRANSPLANTED LIVER [None]
  - PROTHROMBIN TIME PROLONGED [None]
  - INCORRECT DOSE ADMINISTERED [None]
